FAERS Safety Report 7639344-9 (Version None)
Quarter: 2011Q3

REPORT INFORMATION
  Report Type: 
  Country: None (occurrence: None)
  Receive Date: 20110727
  Receipt Date: 20110718
  Transmission Date: 20111222
  Serious: Yes (Hospitalization, Other)
  Sender: FDA-Public Use
  Company Number: PR-ABBOTT-11P-131-0837580-00

PATIENT
  Sex: Female
  Weight: 88.53 kg

DRUGS (9)
  1. PERSANTINE [Concomitant]
     Indication: PRODUCT USED FOR UNKNOWN INDICATION
     Route: 047
  2. LISINOPRIL [Concomitant]
     Route: 048
  3. SYNTHROID [Concomitant]
     Indication: HYPOTHYROIDISM
     Route: 048
  4. METFORMIN HCL [Concomitant]
     Indication: DIABETES MELLITUS
     Route: 048
  5. VITAMIN D [Concomitant]
     Indication: OSTEOPOROSIS
     Route: 048
  6. LISINOPRIL [Suspect]
     Indication: HYPERTENSION
  7. HUMIRA [Suspect]
     Indication: RHEUMATOID ARTHRITIS
     Route: 058
  8. PROZAC [Concomitant]
     Indication: DEPRESSION
     Route: 048
  9. HYDROCHLOROTHIAZIDE [Concomitant]
     Indication: HYPERTENSION
     Route: 048

REACTIONS (15)
  - INFLUENZA LIKE ILLNESS [None]
  - EYE DISCHARGE [None]
  - ACTIVITIES OF DAILY LIVING IMPAIRED [None]
  - DEPRESSION [None]
  - NASAL CONGESTION [None]
  - MALAISE [None]
  - OROPHARYNGEAL PAIN [None]
  - TYMPANIC MEMBRANE HYPERAEMIA [None]
  - ANOSMIA [None]
  - AGEUSIA [None]
  - SENSORY DISTURBANCE [None]
  - PAIN [None]
  - CEREBROVASCULAR ACCIDENT [None]
  - EAR CONGESTION [None]
  - COUGH [None]
